FAERS Safety Report 4426438-4 (Version None)
Quarter: 2004Q3

REPORT INFORMATION
  Report Type: 
  Country: None (occurrence: None)
  Receive Date: 20040811
  Receipt Date: 20040729
  Transmission Date: 20050211
  Serious: Yes (Other)
  Sender: FDA-Public Use
  Company Number: GB-2004-029546

PATIENT
  Sex: 0

DRUGS (2)
  1. FLUDARABINE PHOSPHATE [Suspect]
  2. CYCLOPHOSPHAMIDE [Suspect]

REACTIONS (3)
  - RASH [None]
  - SKIN NECROSIS [None]
  - SKIN NODULE [None]
